FAERS Safety Report 6793400-6 (Version None)
Quarter: 2010Q2

REPORT INFORMATION
  Report Type: 
  Country: None (occurrence: None)
  Receive Date: 20100624
  Receipt Date: 20100319
  Transmission Date: 20101027
  Serious: Yes (Death)
  Sender: FDA-Public Use
  Company Number: US-MYLANLABS-2010S1002010

PATIENT
  Age: 47 Year
  Sex: Female
  Weight: 173.73 kg

DRUGS (8)
  1. CLOZAPINE [Suspect]
     Indication: PSYCHOTIC DISORDER
     Route: 048
  2. CLOZAPINE [Suspect]
     Indication: BIPOLAR DISORDER
     Route: 048
  3. CLOZAPINE [Suspect]
     Route: 048
  4. CLOZAPINE [Suspect]
     Route: 048
  5. TRAZODONE HYDROCHLORIDE [Concomitant]
  6. CLONAZEPAM [Concomitant]
  7. CYMBALTA [Concomitant]
  8. NEURONTIN [Concomitant]

REACTIONS (1)
  - DEATH [None]
